FAERS Safety Report 7751389-7 (Version None)
Quarter: 2011Q3

REPORT INFORMATION
  Report Type: 
  Country: None (occurrence: None)
  Receive Date: 20110914
  Receipt Date: 20110912
  Transmission Date: 20111222
  Serious: No
  Sender: FDA-Public Use
  Company Number: US-BAYER-2011-084732

PATIENT
  Age: 44 Year
  Sex: Female
  Weight: 86.168 kg

DRUGS (2)
  1. MERCAPTOPURINE [Concomitant]
  2. ULTRAVIST 150 [Suspect]
     Indication: COMPUTERISED TOMOGRAM
     Dosage: 100 UNK, ONCE
     Route: 042
     Dates: start: 20110912, end: 20110912

REACTIONS (3)
  - PRURITUS [None]
  - PRURITUS GENERALISED [None]
  - URTICARIA [None]
